FAERS Safety Report 10510478 (Version 1)
Quarter: 2014Q4

REPORT INFORMATION
  Report Type: Spontaneous
  Country: US (occurrence: US)
  Receive Date: 20141010
  Receipt Date: 20141010
  Transmission Date: 20150528
  Serious: No
  Sender: FDA-Public Use
  Company Number: US-PFIZER INC-2014274729

PATIENT
  Age: 64 Year
  Sex: Male
  Weight: 63 kg

DRUGS (3)
  1. SUTENT [Suspect]
     Active Substance: SUNITINIB MALATE
     Indication: RENAL CANCER STAGE IV
     Dosage: 50 MG, 1X/DAY
     Route: 048
     Dates: start: 20140908
  2. PNEUMOVAX 23 [Suspect]
     Active Substance: PNEUMOCOCCAL VACCINE, POLYVALENT 23
     Dosage: UNK
  3. DIPHTHERIA AND TETANUS TOXOIDS AND PERTUSSIS VACCINE ADSORBED NOS [Suspect]
     Active Substance: DIPHTHERIA AND TETANUS TOXOIDS AND PERTUSSIS VACCINE
     Dosage: UNK

REACTIONS (2)
  - Injection site pain [Not Recovered/Not Resolved]
  - Myalgia [Not Recovered/Not Resolved]

NARRATIVE: CASE EVENT DATE: 20140929
